FAERS Safety Report 8499343-4 (Version None)
Quarter: 2012Q3

REPORT INFORMATION
  Report Type: 
  Country: None (occurrence: None)
  Receive Date: 20120710
  Receipt Date: 20120709
  Transmission Date: 20120928
  Serious: Yes (Death, Other)
  Sender: FDA-Public Use
  Company Number: PHFR2012GB002207

PATIENT
  Sex: Male

DRUGS (1)
  1. CLOZARIL [Suspect]
     Route: 048
     Dates: start: 20030507

REACTIONS (3)
  - MYOCARDIAL ISCHAEMIA [None]
  - DIARRHOEA [None]
  - CORONARY ARTERY THROMBOSIS [None]
